FAERS Safety Report 18364515 (Version 1)
Quarter: 2020Q4

REPORT INFORMATION
  Report Type: Spontaneous
  Country: US (occurrence: US)
  Receive Date: 20201008
  Receipt Date: 20201008
  Transmission Date: 20210114
  Serious: No
  Sender: FDA-Public Use
  Company Number: None

PATIENT
  Age: 41 Year
  Sex: Female
  Weight: 56.25 kg

DRUGS (9)
  1. CALCIUM [Concomitant]
     Active Substance: CALCIUM
  2. WELLBUTRIN [Concomitant]
     Active Substance: BUPROPION HYDROCHLORIDE
  3. SINGULAIR [Concomitant]
     Active Substance: MONTELUKAST SODIUM
  4. COENZYME Q10 [Concomitant]
     Active Substance: DIETARY SUPPLEMENT\UBIDECARENONE
  5. LISINIPRIL HCTZ [Concomitant]
  6. VITAMIN D3 [Concomitant]
     Active Substance: CHOLECALCIFEROL
  7. FISH OIL [Concomitant]
     Active Substance: FISH OIL
  8. PROBIOTIC [Concomitant]
     Active Substance: PROBIOTICS NOS
  9. EMGALITY [Suspect]
     Active Substance: GALCANEZUMAB-GNLM
     Indication: MIGRAINE
     Dates: start: 20200921

REACTIONS (10)
  - Weight increased [None]
  - Abdominal distension [None]
  - Pain [None]
  - Drug ineffective [None]
  - Injection site bruising [None]
  - Injection site mass [None]
  - Myalgia [None]
  - Constipation [None]
  - Injection site pain [None]
  - Arthralgia [None]

NARRATIVE: CASE EVENT DATE: 20201008
